FAERS Safety Report 10136032 (Version 1)
Quarter: 2014Q2

REPORT INFORMATION
  Report Type: Spontaneous
  Country: US (occurrence: US)
  Receive Date: 20140429
  Receipt Date: 20140429
  Transmission Date: 20141212
  Serious: Yes (Hospitalization)
  Sender: FDA-Public Use
  Company Number: US-BIOGENIDEC-2014BI038666

PATIENT
  Age: 28 Year
  Sex: Female
  Weight: 103 kg

DRUGS (3)
  1. TYSABRI [Suspect]
     Indication: CROHN^S DISEASE
     Route: 042
     Dates: start: 20080701
  2. PREDNISONE [Concomitant]
     Indication: CROHN^S DISEASE
     Route: 048
     Dates: start: 20140410
  3. TRAMADOL [Concomitant]
     Indication: CROHN^S DISEASE
     Route: 048
     Dates: start: 20140304

REACTIONS (7)
  - Chest pain [Recovered/Resolved]
  - Vitamin D deficiency [Not Recovered/Not Resolved]
  - Gastrooesophageal reflux disease [Not Recovered/Not Resolved]
  - Irritable bowel syndrome [Not Recovered/Not Resolved]
  - Vitamin B12 deficiency [Not Recovered/Not Resolved]
  - Sleep apnoea syndrome [Unknown]
  - Obesity [Not Recovered/Not Resolved]
